FAERS Safety Report 23589327 (Version 4)
Quarter: 2025Q4

REPORT INFORMATION
  Report Type: Spontaneous
  Country: EU (occurrence: EU)
  Receive Date: 20240303
  Receipt Date: 20251208
  Transmission Date: 20260117
  Serious: Yes (Death, Life-Threatening, Hospitalization, Other)
  Sender: Haleon PLC
  Company Number: EU-ELERTE-202400010

PATIENT
  Age: 34 Year
  Sex: Male
  Weight: 79 kg

DRUGS (64)
  1. ACETAMINOPHEN [Interacting]
     Active Substance: ACETAMINOPHEN
     Indication: Back pain
     Dosage: UNK
     Dates: start: 2016, end: 2016
  2. ACETAMINOPHEN [Interacting]
     Active Substance: ACETAMINOPHEN
     Indication: Product used for unknown indication
     Dosage: ROUTE OF ADMINISTRATION: UNKNOWN
  3. ARTANE [Suspect]
     Active Substance: TRIHEXYPHENIDYL HYDROCHLORIDE
     Indication: Product used for unknown indication
     Dosage: UNK
     Dates: start: 20160810, end: 20160908
  4. CLOTIAZEPAM [Interacting]
     Active Substance: CLOTIAZEPAM
     Indication: Product used for unknown indication
     Dosage: 3 TABLETS PER DAY FOR A MONTH
     Dates: start: 20160830
  5. SKENAN [Interacting]
     Active Substance: MORPHINE SULFATE
     Indication: Back pain
     Dosage: 1 DOSAGE FORM, 1/DAY THERAPY START AND END DATE //2016, DOSE FORM: PROLONGED RELEASE CAPSULE
  6. ZOPICLONE [Interacting]
     Active Substance: ZOPICLONE
     Indication: Psychiatric symptom
     Dosage: UNK
  7. ZOPICLONE [Interacting]
     Active Substance: ZOPICLONE
     Indication: Depression
  8. OXAZEPAM [Interacting]
     Active Substance: OXAZEPAM
     Indication: Depression
     Dosage: UNK
  9. OXAZEPAM [Interacting]
     Active Substance: OXAZEPAM
     Indication: Psychiatric symptom
     Dosage: UNK
  10. CODEINE PHOSPHATE\IBUPROFEN [Interacting]
     Active Substance: CODEINE PHOSPHATE\IBUPROFEN
     Indication: Back pain
     Dosage: 1 DOSAGE FORM 3/DAY. THERAPY START DATE: //2016THERAPY END DATE: //2016.
     Dates: start: 20160902
  11. TRAMADOL HYDROCHLORIDE [Interacting]
     Active Substance: TRAMADOL HYDROCHLORIDE
     Indication: Back pain
     Dosage: UNK THERAPY START DATE: //2016 THERAPY END DATE: //2016, PRESCRIBED HIM OVER A PERIOD BETWEEN 28-JUL-2016 AND 05-SEP-2016
  12. TRAMADOL HYDROCHLORIDE [Interacting]
     Active Substance: TRAMADOL HYDROCHLORIDE
     Dosage: UNK THERAPY START DATE: //2016 THERAPY END DATE: //2016
  13. ETIFOXINE [Interacting]
     Active Substance: ETIFOXINE
     Indication: Product used for unknown indication
     Dosage: 20 MG
     Dates: start: 20160810, end: 20160908
  14. ALPRAZOLAM [Interacting]
     Active Substance: ALPRAZOLAM
     Indication: Depression
     Dosage: UNK
  15. ALPRAZOLAM [Interacting]
     Active Substance: ALPRAZOLAM
     Indication: Psychiatric symptom
     Dosage: UNK
  16. NORDAZEPAM [Interacting]
     Active Substance: NORDAZEPAM
     Indication: Product used for unknown indication
     Dosage: ROUTE OF ADMINISTRATION: UNKNOWN
  17. NORDAZEPAM [Interacting]
     Active Substance: NORDAZEPAM
     Dosage: ROUTE OF ADMINISTRATION: UNKNOWN
  18. THIOCOLCHICOSIDE [Interacting]
     Active Substance: THIOCOLCHICOSIDE
     Indication: Product used for unknown indication
     Dosage: UNK
  19. THIOCOLCHICOSIDE [Interacting]
     Active Substance: THIOCOLCHICOSIDE
     Dosage: UNK
  20. PAROXETINE HYDROCHLORIDE [Interacting]
     Active Substance: PAROXETINE HYDROCHLORIDE
     Indication: Back pain
     Dosage: EVERY 0.33 DAY UNITS IN INTERVAL., PAROXETINE 20 MG/UNK THERAPY START DATE: //2016 THERAPY END DATE: //2016
     Dates: start: 20160829, end: 20160908
  21. CLOBAZAM [Interacting]
     Active Substance: CLOBAZAM
     Indication: Product used for unknown indication
     Dosage: UNK
     Dates: start: 20160824, end: 20160908
  22. KETAMINE [Interacting]
     Active Substance: KETAMINE
     Indication: Back pain
     Dosage: THERAPY START DATE: //2016THERAPY END DATE: //2016. THE DOCTOR PRESCRIBED HIM OVER A PERIOD BETWEEN 28- JUL-2016 AND 05-SEP-2016. ROUTE OF ADMINISTRATION: UNKNOWN
  23. KETAMINE [Interacting]
     Active Substance: KETAMINE
     Indication: Back pain
  24. MIANSERIN HYDROCHLORIDE [Interacting]
     Active Substance: MIANSERIN HYDROCHLORIDE
     Indication: Back pain
     Dosage: THERAPY START DATE: //2016?THERAPY END DATE: //2016. ?THE DOCTOR PRESCRIBED HIM OVER A PERIOD BETWEEN 28-JUL-2016 AND 05-SEP-2016
  25. MIANSERIN HYDROCHLORIDE [Interacting]
     Active Substance: MIANSERIN HYDROCHLORIDE
     Indication: Depression
  26. IBUPROFEN [Interacting]
     Active Substance: IBUPROFEN
     Indication: Back pain
     Dosage: 1 DOSAGE FORM (PRESCRIBED OVER A PERIOD BETWEEN 28-JUL-2016 AND 05-SEP-2016)
  27. IBUPROFEN [Interacting]
     Active Substance: IBUPROFEN
     Indication: Back pain
  28. VALIUM [Interacting]
     Active Substance: DIAZEPAM
     Indication: Psychiatric symptom
     Dosage: UNK
     Dates: start: 20160902, end: 20160905
  29. VALIUM [Interacting]
     Active Substance: DIAZEPAM
     Indication: Depression
     Dosage: DOSE FORM: UNKNOWN
  30. VALIUM [Interacting]
     Active Substance: DIAZEPAM
     Indication: Product used for unknown indication
  31. TEMAZEPAM [Interacting]
     Active Substance: TEMAZEPAM
     Indication: Product used for unknown indication
     Dosage: ROUTE OF ADMINISTRATION: UNKNOWN
  32. OXYCONTIN [Interacting]
     Active Substance: OXYCODONE HYDROCHLORIDE
     Indication: Product used for unknown indication
  33. AMISULPRIDE [Concomitant]
     Active Substance: AMISULPRIDE
     Indication: Product used for unknown indication
     Dosage: UNK
  34. AMISULPRIDE [Concomitant]
     Active Substance: AMISULPRIDE
     Indication: Depression
     Dosage: UNK
  35. AMISULPRIDE [Concomitant]
     Active Substance: AMISULPRIDE
     Indication: Psychiatric symptom
  36. PRAZEPAM [Interacting]
     Active Substance: PRAZEPAM
     Indication: Product used for unknown indication
  37. FENTANYL [Interacting]
     Active Substance: FENTANYL
     Indication: Back pain
     Dosage: THERAPY START DATE: //2016?THERAPY END DATE: //2016/DUROGESIC. ?THE DOCTOR PRESCRIBED HIM OVER A PERIOD BETWEEN 28-JUL-2016 AND 05-SEP-2016
  38. AMISULPRIDE [Interacting]
     Active Substance: AMISULPRIDE
     Indication: Schizophrenia
  39. QUETIAPINE [Interacting]
     Active Substance: QUETIAPINE
     Indication: Product used for unknown indication
     Dosage: 300 MILLIGRAM, 1/DAY, ROUTE OF ADMINISTRATION: UNKNOWN, DOSE FORM: UNKNOWN
  40. QUETIAPINE [Interacting]
     Active Substance: QUETIAPINE
     Dosage: 500 MG, ROUTE OF ADMINISTRATION: UNKNOWN
  41. QUETIAPINE [Interacting]
     Active Substance: QUETIAPINE
     Dosage: UNK
  42. QUETIAPINE [Interacting]
     Active Substance: QUETIAPINE
  43. SKENAN [Interacting]
     Active Substance: MORPHINE SULFATE
     Indication: Back pain
     Dosage: UNK
  44. SKENAN [Interacting]
     Active Substance: MORPHINE SULFATE
     Dosage: 60 MG
     Dates: start: 20160902, end: 20160905
  45. SKENAN [Interacting]
     Active Substance: MORPHINE SULFATE
     Dosage: THERAPY START DATE: //2016THERAPY END DATE: //2016. THE DOCTOR PRESCRIBED HIM OVER A PERIOD BETWEEN 28- JUL-2016 AND 05-SEP-2016
  46. OXAZEPAM [Interacting]
     Active Substance: OXAZEPAM
     Indication: Product used for unknown indication
     Dosage: ROUTE OF ADMINISTRATION: UNKNOWN
  47. NIFUROXAZIDE [Interacting]
     Active Substance: NIFUROXAZIDE
     Indication: Product used for unknown indication
     Dosage: UNK
  48. NAFRONYL [Interacting]
     Active Substance: NAFRONYL
     Indication: Product used for unknown indication
     Dosage: UNK, ROUTE OF ADMINISTRATION: UNKNOWN
  49. NAFRONYL [Interacting]
     Active Substance: NAFRONYL
     Dosage: ROUTE OF ADMINISTRATION: UNKNOWN
  50. COCAINE [Interacting]
     Active Substance: COCAINE
     Indication: Product used for unknown indication
     Dosage: ROUTE OF ADMINISTRATION: UNKNOWN
  51. CLONAZEPAM [Interacting]
     Active Substance: CLONAZEPAM
     Indication: Product used for unknown indication
     Dosage: 10 MILLIGRAM
  52. MEPHENESIN [Interacting]
     Active Substance: MEPHENESIN
     Indication: Product used for unknown indication
     Dosage: ROUTE OF ADMINISTRATION: UNKNOWN
  53. PAROXETINE MESYLATE [Interacting]
     Active Substance: PAROXETINE MESYLATE
     Indication: Back pain
     Dosage: 20 MG
     Dates: start: 20160817, end: 20160908
  54. PAROXETINE MESYLATE [Interacting]
     Active Substance: PAROXETINE MESYLATE
     Dosage: PAROXETINE 20 MG/THERAPY START ?DATE: //2016THERAPY END DATE: //2016.
  55. ARTANE [Interacting]
     Active Substance: TRIHEXYPHENIDYL HYDROCHLORIDE
     Indication: Product used for unknown indication
     Dosage: UNK
     Dates: start: 20160810, end: 20160908
  56. SKENAN [Interacting]
     Active Substance: MORPHINE SULFATE
     Indication: Back pain
     Dates: start: 20160902, end: 20160905
  57. SKENAN [Interacting]
     Active Substance: MORPHINE SULFATE
     Dosage: THERAPY START DATE: //2016THERAPY END DATE: //2016. THE DOCTOR PRESCRIBED HIM OVER A PERIOD BETWEEN 28- JUL-2016 AND 05-SEP-2016
  58. SKENAN [Interacting]
     Active Substance: MORPHINE SULFATE
  59. ACETAMINOPHEN\CODEINE PHOSPHATE [Interacting]
     Active Substance: ACETAMINOPHEN\CODEINE PHOSPHATE
     Indication: Product used for unknown indication
  60. MORPHINE [Interacting]
     Active Substance: MORPHINE
     Indication: Product used for unknown indication
  61. ACETAMINOPHEN\TRAMADOL [Interacting]
     Active Substance: ACETAMINOPHEN\TRAMADOL
     Indication: Product used for unknown indication
     Dosage: TRAMADOL/PARACETAMOL EG LABO 37,5MG/325 MG, ROUTE OF ADMINISTRATION: UNKNOWN
  62. ACETAMINOPHEN\TRAMADOL [Interacting]
     Active Substance: ACETAMINOPHEN\TRAMADOL
  63. TRAMADOL HYDROCHLORIDE [Interacting]
     Active Substance: TRAMADOL HYDROCHLORIDE
     Indication: Back pain
     Dosage: THERAPY START DATE: //2016THERAPY END DATE: //2016. THE DOCTOR PRESCRIBED HIM OVER A PERIOD BETWEEN 28- JUL-2016 AND 05-SEP-2016, ROUTE OF ADMINISTRATION: UNKNOWN
  64. BROMAZEPAM [Interacting]
     Active Substance: BROMAZEPAM
     Indication: Product used for unknown indication
     Dosage: 3 TIMES DAILY, ROUTE OF ADMINISTRATION: UNKNOWN

REACTIONS (63)
  - Hyperglycaemia [Fatal]
  - Liver injury [Unknown]
  - Coronary artery stenosis [Fatal]
  - Labelled drug-drug interaction issue [Fatal]
  - Asteatosis [Unknown]
  - Myocarditis [Fatal]
  - Cardiomyopathy [Fatal]
  - Arrhythmia [Unknown]
  - Encephalopathy [Fatal]
  - Necrosis [Fatal]
  - Overdose [Fatal]
  - Overdose [Fatal]
  - Hepatitis acute [Fatal]
  - Product prescribing issue [Unknown]
  - Somnolence [Fatal]
  - Hepatic failure [Unknown]
  - Coma [Fatal]
  - Thirst [Unknown]
  - Accidental poisoning [Fatal]
  - Ketosis [Fatal]
  - Hepatic cytolysis [Fatal]
  - Logorrhoea [Unknown]
  - Prescribed overdose [Fatal]
  - Hypotension [Unknown]
  - Myocardial infarction [Fatal]
  - Aspiration [Fatal]
  - Drug abuse [Fatal]
  - Coronary artery stenosis [Fatal]
  - Hypersomnia [Unknown]
  - Confusional state [Fatal]
  - Cardiac disorder [Fatal]
  - Leukocytosis [Unknown]
  - Stenosis [Fatal]
  - Acute pulmonary oedema [Fatal]
  - Monocytosis [Unknown]
  - Drug screen false positive [Fatal]
  - Pancreas infection [Fatal]
  - Toxicity to various agents [Fatal]
  - Hepatic enzyme increased [Fatal]
  - Jaundice [Fatal]
  - White blood cell count increased [Fatal]
  - Inflammation [Unknown]
  - Cholecystitis infective [Fatal]
  - Cardio-respiratory arrest [Fatal]
  - Respiratory depression [Fatal]
  - Synovitis [Unknown]
  - Hepatobiliary disease [Unknown]
  - Panic attack [Unknown]
  - Aggression [Unknown]
  - Nephropathy toxic [Unknown]
  - Intentional self-injury [Fatal]
  - Synovitis [Recovered/Resolved]
  - Pancreatic injury [Unknown]
  - Coronary artery disease [Unknown]
  - Gallbladder injury [Fatal]
  - Bladder injury [Unknown]
  - Pulmonary oedema [Fatal]
  - Respiratory depression [Fatal]
  - Acute pulmonary oedema [Fatal]
  - Hepatic cytolysis [Fatal]
  - Cardiomyopathy [Fatal]
  - Toxicity to various agents [Fatal]
  - Labelled drug-drug interaction issue [Fatal]

NARRATIVE: CASE EVENT DATE: 20160902
